FAERS Safety Report 22308389 (Version 1)
Quarter: 2023Q2

REPORT INFORMATION
  Report Type: Spontaneous
  Country: US (occurrence: None)
  Receive Date: 20230511
  Receipt Date: 20230511
  Transmission Date: 20230722
  Serious: No
  Sender: FDA-Public Use
  Company Number: US-ROCHE-3207340

PATIENT
  Sex: Female

DRUGS (1)
  1. OCREVUS [Suspect]
     Active Substance: OCRELIZUMAB
     Indication: Product used for unknown indication
     Dosage: SUBSEQUENT DOSE 20/OCT/2022?300MG IV OCREVUS AND HAD EXPLOSIVE DIARRHEA AFTER BOTH DOSES 10/6/22 AND
     Route: 042
     Dates: start: 20221006

REACTIONS (1)
  - Diarrhoea [Unknown]
